FAERS Safety Report 12631969 (Version 2)
Quarter: 2016Q3

REPORT INFORMATION
  Report Type: Spontaneous
  Country: US (occurrence: US)
  Receive Date: 20160808
  Receipt Date: 20160808
  Transmission Date: 20161109
  Serious: No
  Sender: FDA-Public Use
  Company Number: US-BEH-2016061530

PATIENT
  Age: 9 Year
  Sex: Female
  Weight: 23 kg

DRUGS (6)
  1. HIZENTRA [Suspect]
     Active Substance: HUMAN IMMUNOGLOBULIN G
     Indication: IMMUNODEFICIENCY
     Route: 058
  2. LAMOTRIGINE. [Concomitant]
     Active Substance: LAMOTRIGINE
  3. EPIPEN JR [Concomitant]
     Active Substance: EPINEPHRINE
  4. NASONEX [Concomitant]
     Active Substance: MOMETASONE FUROATE
  5. LIDOCAINE. [Concomitant]
     Active Substance: LIDOCAINE
  6. ONFI [Concomitant]
     Active Substance: CLOBAZAM

REACTIONS (1)
  - Upper respiratory tract infection [Unknown]

NARRATIVE: CASE EVENT DATE: 20160203
